FAERS Safety Report 24066132 (Version 2)
Quarter: 2024Q3

REPORT INFORMATION
  Report Type: Report from Study
  Country: US (occurrence: US)
  Receive Date: 20240709
  Receipt Date: 20240716
  Transmission Date: 20241017
  Serious: Yes (Hospitalization)
  Sender: BIOVITRUM
  Company Number: US-BIOVITRUM-2024-US-000753

PATIENT
  Age: 72 Year
  Sex: Female

DRUGS (1)
  1. DOPTELET [Suspect]
     Active Substance: AVATROMBOPAG MALEATE
     Indication: Thrombocytopenia
     Dosage: DAILY
     Route: 048
     Dates: start: 20231222

REACTIONS (26)
  - Pelvic pain [Unknown]
  - Fibula fracture [Unknown]
  - Neoplasm progression [Unknown]
  - Haemoptysis [Unknown]
  - Rash [Unknown]
  - Arthralgia [Unknown]
  - Emotional disorder [Unknown]
  - Flushing [Not Recovered/Not Resolved]
  - Rhinorrhoea [Unknown]
  - Constipation [Unknown]
  - Diarrhoea [Unknown]
  - Pulmonary mass [Unknown]
  - Muscle spasms [Unknown]
  - Stress [Unknown]
  - Noninfective gingivitis [Unknown]
  - Candida infection [Unknown]
  - Product dose omission issue [Unknown]
  - Platelet count decreased [Unknown]
  - Oral pain [Unknown]
  - Lip pain [Not Recovered/Not Resolved]
  - Limb discomfort [Unknown]
  - Asthenia [Unknown]
  - Drug ineffective [Unknown]
  - Gingival disorder [Unknown]
  - Product blister packaging issue [Unknown]
  - Back pain [Unknown]

NARRATIVE: CASE EVENT DATE: 20240325
